FAERS Safety Report 9812651 (Version 1)
Quarter: 2014Q1

REPORT INFORMATION
  Report Type: Report from Study
  Country: US (occurrence: US)
  Receive Date: 20140113
  Receipt Date: 20140113
  Transmission Date: 20141002
  Serious: Yes (Hospitalization)
  Sender: FDA-Public Use
  Company Number: US-ROCHE-1331777

PATIENT
  Age: 83 Year
  Sex: Male

DRUGS (2)
  1. LUCENTIS [Suspect]
     Indication: PRODUCT USED FOR UNKNOWN INDICATION
     Dosage: OCT/2013 RECEIVED LAST DOSE PRIOR TO SAE
     Route: 050
  2. CARDURA [Concomitant]

REACTIONS (3)
  - Gallbladder disorder [Recovered/Resolved]
  - Visual acuity reduced [Not Recovered/Not Resolved]
  - Amblyopia [Not Recovered/Not Resolved]
